FAERS Safety Report 20595995 (Version 1)
Quarter: 2022Q1

REPORT INFORMATION
  Report Type: Spontaneous
  Country: JP (occurrence: None)
  Receive Date: 20220315
  Receipt Date: 20220315
  Transmission Date: 20220423
  Serious: Yes (Other)
  Sender: FDA-Public Use
  Company Number: 2022A109980

PATIENT
  Sex: Female

DRUGS (1)
  1. FASENRA [Suspect]
     Active Substance: BENRALIZUMAB
     Dosage: DOSE UNKNOWN30.0MG UNKNOWN
     Route: 058

REACTIONS (12)
  - Deafness [Unknown]
  - Seizure [Unknown]
  - Polyneuropathy [Unknown]
  - Angioedema [Not Recovered/Not Resolved]
  - Dysstasia [Unknown]
  - Gait disturbance [Unknown]
  - Pruritus [Not Recovered/Not Resolved]
  - Pain in extremity [Not Recovered/Not Resolved]
  - Swelling [Unknown]
  - Hypoaesthesia [Not Recovered/Not Resolved]
  - Chronic eosinophilic rhinosinusitis [Unknown]
  - Pyrexia [Unknown]

NARRATIVE: CASE EVENT DATE: 20210101
